FAERS Safety Report 5472074-0 (Version None)
Quarter: 2007Q3

REPORT INFORMATION
  Report Type: 
  Country: None (occurrence: None)
  Receive Date: 20070928
  Receipt Date: 20070919
  Transmission Date: 20080115
  Serious: Yes (Death)
  Sender: FDA-Public Use
  Company Number: US-PFIZER INC-2007079875

PATIENT

DRUGS (3)
  1. IRINOTECAN HCL [Suspect]
     Indication: SMALL CELL LUNG CANCER EXTENSIVE STAGE
     Dosage: DAILY DOSE:60MG/M2-FREQ:ON DAYS 1, 8 AND 15 OF 28-DAY CYCLE
     Route: 042
  2. IMATINIB [Suspect]
     Indication: SMALL CELL LUNG CANCER EXTENSIVE STAGE
     Dosage: DAILY DOSE:600MG-FREQ:DAILY
     Route: 048
  3. CARBOPLATIN [Suspect]
     Indication: SMALL CELL LUNG CANCER EXTENSIVE STAGE
     Dosage: TEXT:AUC 4-FREQ:ON DAY 1 OF 28-DAY CYCLE
     Route: 042

REACTIONS (1)
  - HYPOKALAEMIA [None]
